FAERS Safety Report 6133987-X (Version None)
Quarter: 2009Q1

REPORT INFORMATION
  Report Type: 
  Country: None (occurrence: None)
  Receive Date: 20090326
  Receipt Date: 20090325
  Transmission Date: 20090719
  Serious: Yes (Other)
  Sender: FDA-Public Use
  Company Number: GB-WYE-G03292309

PATIENT
  Sex: Female
  Weight: 51 kg

DRUGS (10)
  1. GEMTUZUMAB OZOGAMICIN [Suspect]
     Indication: ACUTE MYELOID LEUKAEMIA
     Dosage: 4.7 MG EVERY 1 TOT
     Route: 042
     Dates: start: 20090227, end: 20090227
  2. ALLOPURINOL [Concomitant]
     Indication: PROPHYLAXIS
     Route: 048
     Dates: start: 20090223, end: 20090309
  3. PARACETAMOL [Concomitant]
     Indication: DRUG USE FOR UNKNOWN INDICATION
     Dosage: UNKNOWN
     Dates: start: 20090307
  4. DAUNORUBICIN [Concomitant]
     Indication: CHEMOTHERAPY
     Dosage: 78 MG EVERY 1 TOT
     Route: 042
     Dates: start: 20090227, end: 20090227
  5. DAUNORUBICIN [Concomitant]
     Dosage: 78 MG EVERY 1 TOT
     Route: 042
     Dates: start: 20090301, end: 20090301
  6. DAUNORUBICIN [Concomitant]
     Dosage: 78 MG EVERY 1 TOT
     Route: 042
     Dates: start: 20090303, end: 20090303
  7. ONDANSETRON [Concomitant]
     Indication: ANTIEMETIC SUPPORTIVE CARE
     Route: 042
     Dates: start: 20090227, end: 20090309
  8. ITRACONAZOLE [Suspect]
     Indication: ANTIFUNGAL PROPHYLAXIS
     Route: 048
     Dates: start: 20090223, end: 20090309
  9. ITRACONAZOLE [Suspect]
     Dosage: UNKNOWN
     Route: 048
     Dates: start: 20090318
  10. CYTARABINE [Concomitant]
     Indication: CHEMOTHERAPY
     Route: 042
     Dates: start: 20090227, end: 20090308

REACTIONS (6)
  - CENTRAL LINE INFECTION [None]
  - CLOSTRIDIAL INFECTION [None]
  - DIARRHOEA [None]
  - LIVER FUNCTION TEST ABNORMAL [None]
  - NEUTROPENIC SEPSIS [None]
  - SEPTIC EMBOLUS [None]
